FAERS Safety Report 16222535 (Version 1)
Quarter: 2019Q2

REPORT INFORMATION
  Report Type: Spontaneous
  Country: FR (occurrence: FR)
  Receive Date: 20190422
  Receipt Date: 20190422
  Transmission Date: 20190711
  Serious: Yes (Hospitalization, Other)
  Sender: FDA-Public Use
  Company Number: FR-MICRO LABS LIMITED-ML2019-00940

PATIENT
  Age: 26 Year
  Sex: Female

DRUGS (5)
  1. DALFAMPRIDINE. [Suspect]
     Active Substance: DALFAMPRIDINE
     Dosage: DAL 10 MG BID SINCE JUNE 2013
  2. BACLOFEN. [Suspect]
     Active Substance: BACLOFEN
  3. NATALIZUMAB [Concomitant]
     Active Substance: NATALIZUMAB
     Indication: MULTIPLE SCLEROSIS
  4. BACLOFEN. [Suspect]
     Active Substance: BACLOFEN
  5. TAMSULOSIN [Concomitant]
     Active Substance: TAMSULOSIN

REACTIONS (1)
  - Status epilepticus [Unknown]
